FAERS Safety Report 15321604 (Version 1)
Quarter: 2018Q3

REPORT INFORMATION
  Report Type: Spontaneous
  Country: US (occurrence: US)
  Receive Date: 20180827
  Receipt Date: 20180827
  Transmission Date: 20181010
  Serious: No
  Sender: FDA-Public Use
  Company Number: US-MYLANLABS-2018M1062248

PATIENT
  Sex: Male

DRUGS (1)
  1. FENTANYL TRANSDERMAL SYSTEM [Suspect]
     Active Substance: FENTANYL
     Indication: PAIN
     Dosage: 1 DF, UNK
     Route: 062

REACTIONS (9)
  - Walking aid user [Unknown]
  - Pain [Unknown]
  - Product adhesion issue [Unknown]
  - Growth accelerated [Unknown]
  - Wrong technique in product usage process [Unknown]
  - Drug ineffective [Unknown]
  - Sneezing [Unknown]
  - Cold sweat [Unknown]
  - Insomnia [Unknown]

NARRATIVE: CASE EVENT DATE: 20180812
